FAERS Safety Report 5892700-1 (Version None)
Quarter: 2008Q3

REPORT INFORMATION
  Report Type: 
  Country: None (occurrence: None)
  Receive Date: 20080923
  Receipt Date: 20080917
  Transmission Date: 20090109
  Serious: Yes (Other)
  Sender: FDA-Public Use
  Company Number: PHHY2008JP12266

PATIENT
  Sex: Male

DRUGS (7)
  1. ZOMETA [Suspect]
     Indication: METASTASES TO BONE
     Dosage: UNK
     Route: 042
     Dates: start: 20061005, end: 20071004
  2. AREDIA [Suspect]
     Indication: METASTASES TO BONE
     Dosage: UNK
     Route: 042
     Dates: start: 20060420, end: 20060906
  3. TAGAMET [Concomitant]
     Indication: GASTRIC ULCER
     Dosage: 800 MG, UNK
     Route: 048
  4. NOLVADEX [Concomitant]
  5. VITAMEDIN [Concomitant]
     Dosage: 3 DF, UNK
     Route: 048
  6. VENA [Concomitant]
     Indication: BREAST CANCER
     Dosage: 50 DF, UNK
     Route: 048
  7. TAXOTERE [Concomitant]
     Indication: BREAST CANCER
     Route: 042

REACTIONS (10)
  - BONE DISORDER [None]
  - BONE LESION [None]
  - HAEMORRHAGE [None]
  - OSTEOMYELITIS [None]
  - OSTEONECROSIS [None]
  - PRIMARY SEQUESTRUM [None]
  - PURULENT DISCHARGE [None]
  - SINUSITIS [None]
  - TOOTH EXTRACTION [None]
  - TOOTHACHE [None]
